FAERS Safety Report 7380125-1 (Version None)
Quarter: 2011Q1

REPORT INFORMATION
  Report Type: 
  Country: None (occurrence: None)
  Receive Date: 20110329
  Receipt Date: 20100607
  Transmission Date: 20110831
  Serious: No
  Sender: FDA-Public Use
  Company Number: US-MYLANLABS-2010S1010289

PATIENT
  Age: 61 Year
  Sex: Female

DRUGS (5)
  1. ASPIRIN [Concomitant]
  2. FENTANYL [Concomitant]
  3. EFFEXOR [Concomitant]
  4. ESTRADIOL [Suspect]
     Indication: HORMONE REPLACEMENT THERAPY
     Route: 062
     Dates: start: 20100101
  5. MULTIVITAMIN [Concomitant]

REACTIONS (4)
  - APPLICATION SITE DRYNESS [None]
  - APPLICATION SITE ERYTHEMA [None]
  - APPLICATION SITE BURN [None]
  - APPLICATION SITE PRURITUS [None]
